FAERS Safety Report 13210911 (Version 1)
Quarter: 2017Q1

REPORT INFORMATION
  Report Type: Spontaneous
  Country: US (occurrence: US)
  Receive Date: 20170209
  Receipt Date: 20170209
  Transmission Date: 20170428
  Serious: Yes (Disabling)
  Sender: FDA-Public Use
  Company Number: None

PATIENT
  Age: 59 Year
  Sex: Female
  Weight: 62.1 kg

DRUGS (3)
  1. THYROID [Concomitant]
     Active Substance: LEVOTHYROXINE\LIOTHYRONINE
  2. ESTROGENS [Concomitant]
     Active Substance: ESTROGENS
  3. LEVAQUIN [Suspect]
     Active Substance: LEVOFLOXACIN
     Indication: SKIN INFECTION
     Dosage: ?          QUANTITY:10 TABLET(S);?
     Route: 048

REACTIONS (4)
  - Swelling [None]
  - Tendon pain [None]
  - Musculoskeletal disorder [None]
  - Tendon rupture [None]

NARRATIVE: CASE EVENT DATE: 20130601
